FAERS Safety Report 16590083 (Version 1)
Quarter: 2019Q3

REPORT INFORMATION
  Report Type: Spontaneous
  Country: US (occurrence: US)
  Receive Date: 20190604
  Receipt Date: 20190604
  Transmission Date: 20191004
  Serious: No
  Sender: FDA-Public Use
  Company Number: None

PATIENT
  Age: 21 Year
  Sex: Male

DRUGS (1)
  1. SIROLIMUS TAB 1 MG [Suspect]
     Active Substance: SIROLIMUS
     Dates: start: 201901

REACTIONS (1)
  - Glaucoma [None]

NARRATIVE: CASE EVENT DATE: 20190604
